FAERS Safety Report 5876181-X (Version None)
Quarter: 2008Q3

REPORT INFORMATION
  Report Type: 
  Country: None (occurrence: None)
  Receive Date: 20080910
  Receipt Date: 20080827
  Transmission Date: 20090109
  Serious: Yes (Other)
  Sender: FDA-Public Use
  Company Number: US-ELI_LILLY_AND_COMPANY-US200808005956

PATIENT
  Sex: Male

DRUGS (3)
  1. FORTEO [Suspect]
     Indication: OSTEOPOROSIS
     Dates: start: 20070801
  2. FORTEO [Suspect]
     Dates: start: 20070801, end: 20080801
  3. CALCIUM [Concomitant]

REACTIONS (1)
  - MALIGNANT MELANOMA [None]
